FAERS Safety Report 21513948 (Version 3)
Quarter: 2023Q2

REPORT INFORMATION
  Report Type: Spontaneous
  Country: US (occurrence: US)
  Receive Date: 20221027
  Receipt Date: 20230615
  Transmission Date: 20230721
  Serious: No
  Sender: FDA-Public Use
  Company Number: US-PFIZER INC-PV202200089676

PATIENT
  Age: 81 Year
  Sex: Female

DRUGS (1)
  1. ESTRING [Suspect]
     Active Substance: ESTRADIOL
     Dosage: UNK , EVERY 3 MONTHS (REPLACE VAGINAL RING)

REACTIONS (2)
  - Gait disturbance [Unknown]
  - Cognitive disorder [Not Recovered/Not Resolved]
